FAERS Safety Report 18004004 (Version 2)
Quarter: 2020Q3

REPORT INFORMATION
  Report Type: Other
  Country: US (occurrence: US)
  Receive Date: 20200710
  Receipt Date: 20200714
  Transmission Date: 20201103
  Serious: Yes (Hospitalization)
  Sender: FDA-Public Use
  Company Number: US-ROCHE-2637927

PATIENT
  Age: 63 Year
  Sex: Female
  Weight: 69.01 kg

DRUGS (14)
  1. LISINOPRIL. [Concomitant]
     Active Substance: LISINOPRIL
     Dosage: STARTED 2 YEARS AGO BEFORE OCREVUS ;ONGOING: NO
     Route: 048
  2. ATORVASTATIN [Concomitant]
     Active Substance: ATORVASTATIN
     Route: 048
  3. OCREVUS [Suspect]
     Active Substance: OCRELIZUMAB
     Indication: PRIMARY PROGRESSIVE MULTIPLE SCLEROSIS
     Dosage: STARTED ABOUT 2 YEARS AGO ;ONGOING: YES
     Route: 042
  4. OCREVUS [Suspect]
     Active Substance: OCRELIZUMAB
     Route: 042
     Dates: start: 20171019
  5. LISINOPRIL. [Concomitant]
     Active Substance: LISINOPRIL
     Dosage: INCREASED DOSE ;ONGOING: YES
     Route: 048
  6. MORPHINE [Concomitant]
     Active Substance: MORPHINE
     Dosage: 10MG EVERY 2 HOURS AS NEEDED ;ONGOING: YES
     Route: 048
  7. LISINOPRIL AND HYDROCHLOROTHIAZIDE [Concomitant]
     Active Substance: HYDROCHLOROTHIAZIDE\LISINOPRIL
     Dosage: LISINOPRIL 20MG HYDROCHLOROTHIAZIDE 12.5MG ;ONGOING: YES
     Route: 048
  8. MORPHINE [Concomitant]
     Active Substance: MORPHINE
     Indication: PAIN IN EXTREMITY
     Dosage: AS NEEDED IN PREPARATION FOR LEG DRESSING CHANGES ;ONGOING: YES
     Route: 048
  9. CEPHALEXIN. [Concomitant]
     Active Substance: CEPHALEXIN
     Route: 048
     Dates: start: 202004
  10. METFORMIN [Concomitant]
     Active Substance: METFORMIN HYDROCHLORIDE
     Dosage: STARTED ABOUT 3 YEARS AGO ;ONGOING: YES
     Route: 048
  11. VIT D [Concomitant]
     Active Substance: VITAMIN D NOS
     Route: 048
  12. BACLOFEN. [Concomitant]
     Active Substance: BACLOFEN
     Dosage: STARTED MAYBE 10 YEARS AGO ;ONGOING: NO
     Route: 048
     Dates: start: 201711, end: 202005
  13. OCREVUS [Suspect]
     Active Substance: OCRELIZUMAB
     Route: 042
     Dates: start: 20171006
  14. OCREVUS [Suspect]
     Active Substance: OCRELIZUMAB
     Route: 042
     Dates: start: 20180413

REACTIONS (11)
  - Dehydration [Recovered/Resolved]
  - Intentional product misuse [Unknown]
  - Skin ulcer [Recovering/Resolving]
  - Amnesia [Unknown]
  - Pain [Not Recovered/Not Resolved]
  - Off label use [Unknown]
  - Sepsis [Recovering/Resolving]
  - Infected skin ulcer [Unknown]
  - Confusional state [Recovered/Resolved]
  - Mobility decreased [Not Recovered/Not Resolved]
  - Somnolence [Recovered/Resolved]

NARRATIVE: CASE EVENT DATE: 2020
